FAERS Safety Report 9651079 (Version 1)
Quarter: 2013Q4

REPORT INFORMATION
  Report Type: Spontaneous
  Country: US (occurrence: US)
  Receive Date: 20131029
  Receipt Date: 20131029
  Transmission Date: 20140711
  Serious: No
  Sender: FDA-Public Use
  Company Number: US-PFIZER INC-2013307465

PATIENT
  Age: 69 Year
  Sex: Female
  Weight: 63.49 kg

DRUGS (1)
  1. DICLOFENAC SODIUM/MISOPROSTOL [Suspect]
     Dosage: 75MG TWO TIMES A DAY
     Dates: start: 20130401, end: 20130824

REACTIONS (1)
  - Hypersensitivity [Unknown]
